FAERS Safety Report 15219900 (Version 1)
Quarter: 2018Q3

REPORT INFORMATION
  Report Type: Spontaneous
  Country: US (occurrence: US)
  Receive Date: 20180704
  Receipt Date: 20180704
  Transmission Date: 20181010
  Serious: Yes (Other)
  Sender: FDA-Public Use
  Company Number: None

PATIENT
  Age: 45 Year
  Sex: Female
  Weight: 92.25 kg

DRUGS (2)
  1. FLUTICASONE PROPIONATE NASAL SPRAY USP [Suspect]
     Active Substance: FLUTICASONE PROPIONATE
     Indication: SINUS DISORDER
     Dosage: ?          OTHER STRENGTH:MCG;QUANTITY:2 SPRAY(S);OTHER ROUTE:NOSE?
     Dates: start: 20160501, end: 20180704
  2. LISINIPRIL [Concomitant]
     Active Substance: LISINOPRIL

REACTIONS (2)
  - Epistaxis [None]
  - Product quality issue [None]

NARRATIVE: CASE EVENT DATE: 20180515
